FAERS Safety Report 7243643-2 (Version None)
Quarter: 2011Q1

REPORT INFORMATION
  Report Type: 
  Country: None (occurrence: None)
  Receive Date: 20110125
  Receipt Date: 20110117
  Transmission Date: 20110831
  Serious: Yes (Hospitalization)
  Sender: FDA-Public Use
  Company Number: PHHY2011MX03521

PATIENT
  Age: 29 Year
  Sex: Male

DRUGS (1)
  1. TRILEPTAL [Suspect]
     Indication: EPILEPSY
     Dosage: 4 DF, QD
     Route: 048
     Dates: start: 20090601

REACTIONS (2)
  - ROAD TRAFFIC ACCIDENT [None]
  - INFECTION [None]
